FAERS Safety Report 9018202 (Version 1)
Quarter: 2013Q1

REPORT INFORMATION
  Report Type: Spontaneous
  Country: US (occurrence: US)
  Receive Date: 20130117
  Receipt Date: 20130117
  Transmission Date: 20140127
  Serious: No
  Sender: FDA-Public Use
  Company Number: US-ASTRAZENECA-2011SE52420

PATIENT
  Age: 77 Year
  Sex: Female

DRUGS (9)
  1. NEXIUM [Suspect]
     Route: 048
  2. ATACAND [Suspect]
     Route: 048
  3. LISINOPRIL [Suspect]
     Route: 048
  4. NORVASC [Concomitant]
  5. LIPITOR [Concomitant]
  6. CELEBREX [Concomitant]
  7. NASONEX [Concomitant]
  8. LEVOTHYROXINE [Concomitant]
  9. ZOLOFT [Concomitant]

REACTIONS (2)
  - Influenza [Unknown]
  - Cough [Unknown]
